FAERS Safety Report 19581190 (Version 6)
Quarter: 2022Q2

REPORT INFORMATION
  Report Type: Report from Study
  Country: US (occurrence: US)
  Receive Date: 20210719
  Receipt Date: 20220516
  Transmission Date: 20220720
  Serious: Yes (Hospitalization, Other)
  Sender: FDA-Public Use
  Company Number: US-BRISTOL-MYERS SQUIBB COMPANY-BMS-2021-067519

PATIENT
  Age: 67 Year
  Sex: Male
  Weight: 100 kg

DRUGS (14)
  1. NIVOLUMAB\RELATLIMAB-RMBW [Suspect]
     Active Substance: NIVOLUMAB\RELATLIMAB-RMBW
     Dosage: MOST RECENT DOSE OF STUDY THERAPY ON 03-MAY-2021
     Route: 042
     Dates: start: 20210309
  2. NASONEX [Concomitant]
     Active Substance: MOMETASONE FUROATE
     Indication: Product used for unknown indication
     Dosage: 1 DOSAGE FORM: 2 UNIT NOS
     Route: 045
     Dates: start: 20201228, end: 20211104
  3. SODIUM CHLORIDE [Concomitant]
     Active Substance: SODIUM CHLORIDE
     Indication: Hyponatraemia
     Dosage: 1 DOSAGE FORM=1 UNIT NOS
     Route: 042
     Dates: start: 20210708, end: 20210708
  4. SODIUM CHLORIDE [Concomitant]
     Active Substance: SODIUM CHLORIDE
     Dosage: 1 DOSAGE FORM=250 UNITS NOS, BOLUS
     Route: 042
     Dates: start: 20210628, end: 20210628
  5. SODIUM CHLORIDE [Concomitant]
     Active Substance: SODIUM CHLORIDE
     Dosage: 1 DOSAGE FORM=1000UNITS NOS
     Route: 042
     Dates: start: 20210708, end: 20210708
  6. HYDROCORTISONE (CORTIZONE) 1 % CREAM [Concomitant]
     Indication: Product used for unknown indication
     Dosage: 1 DF: 2 UNIT NOS
     Route: 061
     Dates: start: 20210708, end: 20210711
  7. PFIZER COVID-19 (BNT162B2) [Concomitant]
     Indication: Prophylaxis
     Route: 030
     Dates: start: 20210409
  8. PFIZER COVID-19 (BNT162B2) [Concomitant]
     Route: 030
     Dates: start: 20210430
  9. XANAX [Concomitant]
     Active Substance: ALPRAZOLAM
     Indication: Anxiety
     Route: 042
     Dates: start: 20210222, end: 20210719
  10. LIPITOR [Concomitant]
     Active Substance: ATORVASTATIN CALCIUM
     Indication: Product used for unknown indication
     Route: 048
     Dates: start: 20210601, end: 20210927
  11. ROXICODONE [Concomitant]
     Active Substance: OXYCODONE HYDROCHLORIDE
     Indication: Product used for unknown indication
     Route: 048
     Dates: start: 20210621, end: 20210719
  12. ZOFRAN [Concomitant]
     Active Substance: ONDANSETRON HYDROCHLORIDE
     Indication: Product used for unknown indication
     Route: 048
     Dates: start: 20210621, end: 20210729
  13. HYDROCORTISONE [Concomitant]
     Active Substance: HYDROCORTISONE
     Indication: Rash maculo-papular
     Dosage: 1 DOSAGE FORM=2UNITS NOS
     Route: 061
     Dates: start: 20210708, end: 20210711
  14. HYDROGEN PEROXIDE [Concomitant]
     Active Substance: HYDROGEN PEROXIDE
     Indication: Product used for unknown indication
     Dosage: UNK
     Route: 061
     Dates: start: 202107

REACTIONS (4)
  - Acute kidney injury [Recovered/Resolved]
  - Muscular weakness [Not Recovered/Not Resolved]
  - Alanine aminotransferase increased [Recovered/Resolved]
  - Aspartate aminotransferase increased [Recovered/Resolved]

NARRATIVE: CASE EVENT DATE: 20210708
